FAERS Safety Report 20708090 (Version 1)
Quarter: 2022Q2

REPORT INFORMATION
  Report Type: Spontaneous
  Country: FR (occurrence: FR)
  Receive Date: 20220414
  Receipt Date: 20220414
  Transmission Date: 20220721
  Serious: Yes (Death, Other)
  Sender: FDA-Public Use
  Company Number: FR-AMGEN-FRASP2022063280

PATIENT

DRUGS (12)
  1. TRASTUZUMAB [Suspect]
     Active Substance: TRASTUZUMAB
     Indication: HER2 positive gastric cancer
     Route: 065
  2. CISPLATIN [Suspect]
     Active Substance: CISPLATIN
     Indication: HER2 positive gastric cancer
     Route: 065
  3. FLUOROURACIL [Suspect]
     Active Substance: FLUOROURACIL
     Indication: HER2 positive gastric cancer
     Route: 065
  4. FLUOROURACIL\LEUCOVORIN\OXALIPLATIN [Concomitant]
     Active Substance: FLUOROURACIL\LEUCOVORIN\OXALIPLATIN
  5. CISPLATIN;DOCETAXEL;FLUOROURACIL [Concomitant]
  6. DOCETAXEL;FLUOROURACIL;FOLINIC ACID;OXALIPLATIN [Concomitant]
  7. PACLITAXEL [Concomitant]
     Active Substance: PACLITAXEL
  8. FLUOROURACIL\IRINOTECAN\LEUCOVORIN [Concomitant]
     Active Substance: FLUOROURACIL\IRINOTECAN\LEUCOVORIN
  9. CAPECITABINE;EPIRUBICIN;OXALIPLATIN [Concomitant]
  10. METHOTREXATE [Concomitant]
     Active Substance: METHOTREXATE
  11. DOXORUBICIN [Concomitant]
     Active Substance: DOXORUBICIN
  12. CISPLATIN [Concomitant]
     Active Substance: CISPLATIN

REACTIONS (2)
  - Death [Fatal]
  - Therapy partial responder [Unknown]
